FAERS Safety Report 5485306-X (Version None)
Quarter: 2007Q4

REPORT INFORMATION
  Report Type: 
  Country: None (occurrence: None)
  Receive Date: 20071010
  Receipt Date: 20071010
  Transmission Date: 20080405
  Serious: Yes (Life-Threatening, Hospitalization)
  Sender: FDA-Public Use
  Company Number: None

PATIENT
  Age: 22 Year
  Sex: Male

DRUGS (2)
  1. DEXTROMETHORPHAN HYDROBROMIDE [Suspect]
     Dates: start: 20071001, end: 20071001
  2. PSEUDOEPHEDRINE HCL [Suspect]
     Dates: start: 20071001, end: 20071001

REACTIONS (3)
  - LETHARGY [None]
  - RESPIRATORY DEPRESSION [None]
  - SUICIDE ATTEMPT [None]
